FAERS Safety Report 8107455-X (Version None)
Quarter: 2012Q1

REPORT INFORMATION
  Report Type: 
  Country: None (occurrence: None)
  Receive Date: 20120202
  Receipt Date: 20120126
  Transmission Date: 20120608
  Serious: No
  Sender: FDA-Public Use
  Company Number: US-B.I. PHARMACEUTICALS,INC./RIDGEFIELD-2012-BP-01681BP

PATIENT
  Sex: Female

DRUGS (8)
  1. PAXIL [Concomitant]
     Indication: DEPRESSION
     Route: 048
  2. LEVOTHYROXINE SODIUM [Concomitant]
     Indication: HYPOTHYROIDISM
     Route: 048
  3. KLONOPIN [Concomitant]
     Indication: PANIC ATTACK
     Route: 048
  4. MELOXICAM [Concomitant]
     Indication: ARTHRALGIA
     Route: 048
  5. HYDROCODONE BITARTRATE [Concomitant]
     Indication: ARTHRALGIA
     Route: 048
  6. HORMONES [Concomitant]
     Indication: MENOPAUSE
     Route: 048
  7. COMBIVENT [Suspect]
     Indication: CHRONIC OBSTRUCTIVE PULMONARY DISEASE
     Route: 055
     Dates: start: 20080101
  8. FLEXERIL [Concomitant]
     Indication: PAIN
     Route: 048

REACTIONS (3)
  - LARYNGITIS [None]
  - LOWER RESPIRATORY TRACT INFECTION [None]
  - COUGH [None]
